FAERS Safety Report 5034095-1 (Version None)
Quarter: 2006Q2

REPORT INFORMATION
  Report Type: 
  Country: None (occurrence: None)
  Receive Date: 20060621
  Receipt Date: 20060609
  Transmission Date: 20061013
  Serious: Yes (Death)
  Sender: FDA-Public Use
  Company Number: 163-20785-06040523

PATIENT
  Age: 62 Year
  Sex: Male

DRUGS (4)
  1. THALOMID [Suspect]
     Indication: MULTIPLE MYELOMA
     Dosage: 100 MG, DAILY, ORAL
     Route: 048
     Dates: start: 20050920, end: 20051024
  2. DECADRON [Suspect]
     Dosage: 40 MG, QD ON DAYS 1-4 OF EACH MONTH, 9-12, 17-20,
  3. GLIMEPIRIDE [Concomitant]
  4. ALLOPURINOL [Concomitant]

REACTIONS (2)
  - INTESTINAL INFARCTION [None]
  - SEPSIS [None]
